FAERS Safety Report 17420436 (Version 2)
Quarter: 2020Q1

REPORT INFORMATION
  Report Type: Report from Study
  Country: US (occurrence: US)
  Receive Date: 20200214
  Receipt Date: 20200310
  Transmission Date: 20200409
  Serious: Yes (Death, Hospitalization, Other)
  Sender: FDA-Public Use
  Company Number: US-BAYER-2020-002724

PATIENT
  Age: 85 Year
  Sex: Female
  Weight: 76.19 kg

DRUGS (12)
  1. ADEMPAS [Suspect]
     Active Substance: RIOCIGUAT
     Indication: PULMONARY ARTERIAL HYPERTENSION
     Dosage: UNK
     Dates: start: 20190821
  2. POTASSIUM CHLORIDE. [Concomitant]
     Active Substance: POTASSIUM CHLORIDE
     Dosage: 40 MG, BID
     Route: 048
  3. CLOPIDOGREL [Concomitant]
     Active Substance: CLOPIDOGREL BISULFATE
     Dosage: 75 MG, QD
  4. FUROSEMIDE. [Concomitant]
     Active Substance: FUROSEMIDE
     Dosage: 40 MG, BID
     Route: 048
  5. PROPAFENON [PROPAFENONE] [Concomitant]
     Active Substance: PROPAFENONE
     Dosage: 40 MEQ, BID
     Route: 048
  6. METOPROLOL SUCCINATE. [Concomitant]
     Active Substance: METOPROLOL SUCCINATE
     Dosage: 25 MG, QD
     Route: 048
  7. ADEMPAS [Suspect]
     Active Substance: RIOCIGUAT
     Indication: PULMONARY ARTERIAL HYPERTENSION
     Dosage: UNK
     Route: 048
     Dates: start: 201906
  8. BAYER LOW DOSE [Concomitant]
     Active Substance: ASPIRIN
     Dosage: 81 MG, QD
     Route: 048
  9. METOLAZONE. [Concomitant]
     Active Substance: METOLAZONE
     Dosage: 5 MG, QD
     Route: 048
  10. MIDODRINE [Concomitant]
     Active Substance: MIDODRINE
     Dosage: 2.5 MG, TID
     Route: 048
  11. PANTOPRAZOLE [Concomitant]
     Active Substance: PANTOPRAZOLE
     Dosage: 40 MG, BID
     Route: 048
  12. ADEMPAS [Suspect]
     Active Substance: RIOCIGUAT
     Indication: PULMONARY ARTERIAL HYPERTENSION
     Dosage: 1 MG, TID
     Dates: start: 20190821

REACTIONS (24)
  - Cardiac failure congestive [Unknown]
  - Atrial fibrillation [Unknown]
  - Fall [None]
  - Blood pressure decreased [Unknown]
  - N-terminal prohormone brain natriuretic peptide increased [None]
  - Head injury [None]
  - Cystitis [Unknown]
  - Cholecystitis acute [None]
  - Asthenia [None]
  - Dysphagia [Not Recovered/Not Resolved]
  - Confusional state [None]
  - Death [Fatal]
  - Peripheral swelling [Not Recovered/Not Resolved]
  - Blood creatinine increased [None]
  - Weight decreased [None]
  - Skin lesion [Not Recovered/Not Resolved]
  - Large intestinal haemorrhage [Unknown]
  - Hypercholesterolaemia [None]
  - Diarrhoea [None]
  - Nausea [None]
  - Acute kidney injury [None]
  - Blood urea increased [None]
  - Facial bones fracture [None]
  - Appetite disorder [None]

NARRATIVE: CASE EVENT DATE: 201910
